FAERS Safety Report 11026799 (Version 2)
Quarter: 2015Q2

REPORT INFORMATION
  Report Type: Spontaneous
  Country: US (occurrence: US)
  Receive Date: 20150414
  Receipt Date: 20150525
  Transmission Date: 20150821
  Serious: No
  Sender: FDA-Public Use
  Company Number: US-JNJFOC-20130102405

PATIENT
  Sex: Female

DRUGS (2)
  1. LAROPIPRANT [Suspect]
     Active Substance: LAROPIPRANT
     Indication: PRODUCT USED FOR UNKNOWN INDICATION
     Route: 065
  2. ORTHO TRI CYCLEN [Suspect]
     Active Substance: ETHINYL ESTRADIOL\NORGESTIMATE
     Indication: CONTRACEPTION
     Dosage: EE 0.035 MG COMBINED WITH NE??0.180 MG X 7 DAYS, 0.215 MG X 7 DAYS, AND 0.250 MG X 7 DAYS??7 DAYS
     Route: 048

REACTIONS (7)
  - Abdominal pain [Unknown]
  - Rash [Unknown]
  - Vaginal haemorrhage [Unknown]
  - Menstruation irregular [Unknown]
  - Breast tenderness [Unknown]
  - Nausea [Unknown]
  - Headache [Unknown]
